FAERS Safety Report 11225571 (Version 2)
Quarter: 2015Q3

REPORT INFORMATION
  Report Type: Spontaneous
  Country: CA (occurrence: CA)
  Receive Date: 20150629
  Receipt Date: 20150706
  Transmission Date: 20151125
  Serious: Yes (Death, Other)
  Sender: FDA-Public Use
  Company Number: CA-GSKJP-KK201322938GW786034002

PATIENT
  Age: 47 Year
  Sex: Male

DRUGS (3)
  1. STEMETIL [Concomitant]
     Active Substance: PROCHLORPERAZINE MALEATE
     Indication: PRODUCT USED FOR UNKNOWN INDICATION
  2. VOTRIENT [Suspect]
     Active Substance: PAZOPANIB HYDROCHLORIDE
     Indication: SARCOMA
     Route: 048
     Dates: start: 20130107, end: 20131002
  3. EFFEXOR [Concomitant]
     Active Substance: VENLAFAXINE HYDROCHLORIDE
     Indication: PRODUCT USED FOR UNKNOWN INDICATION

REACTIONS (8)
  - Tumour pain [Unknown]
  - Decreased appetite [Unknown]
  - Pallor [Unknown]
  - Muscle tightness [Not Recovered/Not Resolved]
  - Hair colour changes [Unknown]
  - Death [Fatal]
  - Weight decreased [Unknown]
  - Increased tendency to bruise [Unknown]

NARRATIVE: CASE EVENT DATE: 20130109
